FAERS Safety Report 15077395 (Version 1)
Quarter: 2018Q2

REPORT INFORMATION
  Report Type: Spontaneous
  Country: FR (occurrence: FR)
  Receive Date: 20180627
  Receipt Date: 20180627
  Transmission Date: 20180711
  Serious: Yes (Hospitalization)
  Sender: FDA-Public Use
  Company Number: FR-NORTHSTAR HEALTHCARE HOLDINGS-FR-2018NSR000111

PATIENT
  Age: 63 Year
  Sex: Female

DRUGS (10)
  1. OXAZEPAM. [Concomitant]
     Active Substance: OXAZEPAM
     Indication: SLEEP DISORDER
  2. ESCITALOPRAM [Concomitant]
     Active Substance: ESCITALOPRAM OXALATE
     Indication: DEPRESSION
  3. ZOPICLONE [Concomitant]
     Active Substance: ZOPICLONE
     Indication: SLEEP DISORDER
  4. OXAZEPAM. [Concomitant]
     Active Substance: OXAZEPAM
     Indication: ANXIETY
  5. ZOPICLONE [Concomitant]
     Active Substance: ZOPICLONE
     Indication: ANXIETY
  6. OXAZEPAM. [Concomitant]
     Active Substance: OXAZEPAM
     Indication: DEPRESSION
     Dosage: 12.5 MG, QD
  7. BACLOFEN. [Suspect]
     Active Substance: BACLOFEN
     Indication: ALCOHOLISM
     Dosage: 90 MG, TID
  8. ESCITALOPRAM [Concomitant]
     Active Substance: ESCITALOPRAM OXALATE
     Indication: SLEEP DISORDER
     Dosage: 10 MG, QD
  9. ESCITALOPRAM [Concomitant]
     Active Substance: ESCITALOPRAM OXALATE
     Indication: ANXIETY
  10. ZOPICLONE [Concomitant]
     Active Substance: ZOPICLONE
     Indication: DEPRESSION
     Dosage: 7.5 MG, QD

REACTIONS (2)
  - Toxicity to various agents [Unknown]
  - Drug withdrawal syndrome [Recovered/Resolved]
